FAERS Safety Report 8239108-1 (Version None)
Quarter: 2012Q1

REPORT INFORMATION
  Report Type: 
  Country: None (occurrence: None)
  Receive Date: 20120327
  Receipt Date: 20120321
  Transmission Date: 20120608
  Serious: Yes (Hospitalization)
  Sender: FDA-Public Use
  Company Number: PHHO2012NL004677

PATIENT
  Sex: Female
  Weight: 33.4 kg

DRUGS (7)
  1. AZITHROMYCIN [Concomitant]
     Indication: INFECTION
     Dosage: 375 MG, QD
     Route: 048
     Dates: start: 20120316
  2. CYCLOSPORINE [Suspect]
     Indication: STEM CELL TRANSPLANT
     Dosage: 100 MG, BID
     Route: 048
  3. COTRIM [Concomitant]
     Indication: PROPHYLAXIS
     Dosage: 480 MG, 3 X A WEEKK
     Route: 048
  4. TASIGNA [Suspect]
     Indication: CHRONIC MYELOID LEUKAEMIA
     Dosage: 250 MG, BID
     Route: 048
     Dates: start: 20120126, end: 20120320
  5. MYCOPHENOLATE MOFETIL (CELLCEPT) [Suspect]
     Indication: STEM CELL TRANSPLANT
     Dosage: 500 MG, BID
     Route: 048
     Dates: start: 20111201
  6. NIFEDIPINE [Concomitant]
     Indication: HYPERTENSION
     Dosage: 5 MG, BID
     Route: 048
  7. PREDNISONE TAB [Concomitant]
     Indication: ANAEMIA HAEMOLYTIC AUTOIMMUNE
     Dosage: 10 MG, BID
     Route: 048
     Dates: start: 20111201

REACTIONS (2)
  - RENAL FAILURE [None]
  - DIARRHOEA [None]
